FAERS Safety Report 22206975 (Version 1)
Quarter: 2023Q2

REPORT INFORMATION
  Report Type: Report from Study
  Country: CA (occurrence: CA)
  Receive Date: 20230413
  Receipt Date: 20230413
  Transmission Date: 20230722
  Serious: Yes (Other)
  Sender: FDA-Public Use
  Company Number: CA-GILEAD-2023-0619743

PATIENT
  Age: 49 Year
  Sex: Female

DRUGS (12)
  1. SACITUZUMAB GOVITECAN-HZIY [Suspect]
     Active Substance: SACITUZUMAB GOVITECAN-HZIY
     Indication: Triple negative breast cancer
     Dosage: 655 MG
     Route: 042
     Dates: start: 20230223
  2. SACITUZUMAB GOVITECAN-HZIY [Suspect]
     Active Substance: SACITUZUMAB GOVITECAN-HZIY
     Dosage: 524 MG
     Route: 042
     Dates: start: 20230317
  3. SACITUZUMAB GOVITECAN-HZIY [Suspect]
     Active Substance: SACITUZUMAB GOVITECAN-HZIY
     Dosage: 492 MG
     Route: 042
  4. SACITUZUMAB GOVITECAN-HZIY [Suspect]
     Active Substance: SACITUZUMAB GOVITECAN-HZIY
     Dosage: 492 MG
     Route: 042
     Dates: start: 20230228, end: 20230323
  5. DIPHENHYDRAMINE [Concomitant]
     Active Substance: DIPHENHYDRAMINE
     Dosage: 50 MG CVAD (PRE-MEDICATION PRIOR TO TRODELVY)
  6. DIPHENHYDRAMINE [Concomitant]
     Active Substance: DIPHENHYDRAMINE
     Dosage: 50 MG CVAD (PRE-MEDICATION PRIOR TO TRODELVY)
  7. DIPHENHYDRAMINE [Concomitant]
     Active Substance: DIPHENHYDRAMINE
     Dosage: 50 MG CVAD (PRE-MEDICATION PRIOR TO TRODELVY)
  8. DIPHENHYDRAMINE [Concomitant]
     Active Substance: DIPHENHYDRAMINE
     Dosage: 50 MG CVAD (PRE-MEDICATION PRIOR TO TRODELVY)
  9. ACETAMINOPHEN [Concomitant]
     Active Substance: ACETAMINOPHEN
     Dosage: 650 MG PO (PRE-MEDICATION PRIOR TO TRODELVY)
  10. ACETAMINOPHEN [Concomitant]
     Active Substance: ACETAMINOPHEN
     Dosage: 650 MG PO (PRE-MEDICATION PRIOR TO TRODELVY)
  11. ACETAMINOPHEN [Concomitant]
     Active Substance: ACETAMINOPHEN
     Dosage: 650 MG PO (PRE-MEDICATION PRIOR TO TRODELVY)
  12. ACETAMINOPHEN [Concomitant]
     Active Substance: ACETAMINOPHEN
     Dosage: 650 MG PO (PRE-MEDICATION PRIOR TO TRODELVY)

REACTIONS (5)
  - Disease progression [Unknown]
  - Weight fluctuation [Not Recovered/Not Resolved]
  - Blood test abnormal [Not Recovered/Not Resolved]
  - Blood lactate dehydrogenase increased [Unknown]
  - Off label use [Unknown]

NARRATIVE: CASE EVENT DATE: 20230307
